FAERS Safety Report 24753599 (Version 1)
Quarter: 2024Q4

REPORT INFORMATION
  Report Type: Spontaneous
  Country: FR (occurrence: FR)
  Receive Date: 20241219
  Receipt Date: 20241219
  Transmission Date: 20250115
  Serious: Yes (Other)
  Sender: RANBAXY
  Company Number: FR-AFSSAPS-CN2024001083

PATIENT
  Age: 60 Year
  Sex: Female

DRUGS (22)
  1. OLANZAPINE [Suspect]
     Active Substance: OLANZAPINE
     Indication: Schizoaffective disorder
     Dosage: 0-0-1
     Route: 048
     Dates: start: 20240406, end: 20240814
  2. OLANZAPINE [Suspect]
     Active Substance: OLANZAPINE
     Dosage: 0-0-1
     Route: 048
     Dates: end: 20240926
  3. OLANZAPINE [Suspect]
     Active Substance: OLANZAPINE
     Dosage: 0-0-1
     Route: 048
  4. FLUPENTIXOL [Suspect]
     Active Substance: FLUPENTIXOL
     Indication: Schizoaffective disorder
     Dosage: FLUANXOL 4% SOL BUV 20MG/DAY
     Route: 030
     Dates: start: 20240402, end: 20240403
  5. FLUPENTIXOL [Suspect]
     Active Substance: FLUPENTIXOL
     Dosage: FLUANXOL 4% SOL BUV 40MG/J
     Route: 048
     Dates: start: 20240403, end: 20240406
  6. FLUPENTIXOL [Suspect]
     Active Substance: FLUPENTIXOL
     Dosage: FLUANXOL 4% SOL BUV 80MG/J
     Route: 048
     Dates: start: 20240406, end: 20240417
  7. FLUPENTIXOL [Suspect]
     Active Substance: FLUPENTIXOL
     Dosage: FLUANXOL LP100MG TOUS LES 14J
     Route: 030
     Dates: start: 20240418, end: 20241031
  8. RISPERIDONE [Concomitant]
     Active Substance: RISPERIDONE
     Indication: Product used for unknown indication
     Dosage: 1-0-1
     Route: 048
     Dates: start: 20240201, end: 20240302
  9. LOXAPINE [Concomitant]
     Active Substance: LOXAPINE
     Indication: Product used for unknown indication
     Dosage: 50-25-25-25-50MG
     Route: 048
     Dates: start: 20240207, end: 20240302
  10. TERALITHE [Concomitant]
     Active Substance: LITHIUM CARBONATE
     Indication: Product used for unknown indication
     Dosage: 400 MILLIGRAM, DAILY
     Route: 048
     Dates: start: 20240125, end: 20240128
  11. TERALITHE [Concomitant]
     Active Substance: LITHIUM CARBONATE
     Dosage: TERALITHE LP400MG 0-0-2
     Route: 048
     Dates: start: 20240128
  12. CYAMEMAZINE [Concomitant]
     Active Substance: CYAMEMAZINE
     Indication: Product used for unknown indication
     Dosage: 25 MILLIGRAM, DAILY
     Route: 048
     Dates: start: 20240406, end: 20240911
  13. CYAMEMAZINE [Concomitant]
     Active Substance: CYAMEMAZINE
     Indication: Product used for unknown indication
     Dosage: 75 MILLIGRAM, DAILY
     Route: 048
  14. CYAMEMAZINE [Concomitant]
     Active Substance: CYAMEMAZINE
     Dosage: SI BESOIN SI TENSION INTERNE, AGGRESSIVIT?
     Route: 048
  15. OXAZEPAM [Concomitant]
     Active Substance: OXAZEPAM
     Indication: Product used for unknown indication
     Dosage: 100 MILLIGRAM, DAILY
     Route: 048
     Dates: start: 20240129, end: 20240319
  16. OXAZEPAM [Concomitant]
     Active Substance: OXAZEPAM
     Dosage: 1/2-0-1
     Route: 048
     Dates: start: 20240406
  17. TRIHEXYPHENIDYL HYDROCHLORIDE [Concomitant]
     Active Substance: TRIHEXYPHENIDYL HYDROCHLORIDE
     Indication: Product used for unknown indication
     Dosage: 2 MILLIGRAM, DAILY
     Route: 048
     Dates: start: 20240123
  18. DOLIPRANE [Concomitant]
     Active Substance: ACETAMINOPHEN
     Indication: Product used for unknown indication
     Dosage: 3 GRAM, DAILY
     Route: 048
     Dates: end: 20241103
  19. PANTOPRAZOLE [Concomitant]
     Active Substance: PANTOPRAZOLE
     Indication: Product used for unknown indication
     Dosage: 20 MILLIGRAM, DAILY
     Route: 048
     Dates: start: 20240202, end: 20240227
  20. PANTOPRAZOLE [Concomitant]
     Active Substance: PANTOPRAZOLE
     Dosage: 1-0-0
     Route: 048
  21. POLYETHYLENE GLYCOLS [Concomitant]
     Active Substance: POLYETHYLENE GLYCOLS
     Indication: Constipation
     Dosage: 10 GRAM, DAILY
     Route: 048
     Dates: start: 20240126
  22. MICROLAX BEBE [Concomitant]
     Indication: Constipation
     Dosage: IF NECESSARY IF CONSTIPATION NOT RESOLVED BY TTT PO
     Route: 048
     Dates: start: 20240224

REACTIONS (3)
  - Neutropenia [Recovered/Resolved]
  - Leukopenia [Recovering/Resolving]
  - Lymphopenia [Not Recovered/Not Resolved]

NARRATIVE: CASE EVENT DATE: 20240807
